FAERS Safety Report 4727496-X (Version None)
Quarter: 2005Q3

REPORT INFORMATION
  Report Type: 
  Country: None (occurrence: None)
  Receive Date: 20050727
  Receipt Date: 20050727
  Transmission Date: 20060218
  Serious: No
  Sender: FDA-Public Use
  Company Number: None

PATIENT
  Sex: Female
  Weight: 72.5755 kg

DRUGS (8)
  1. PROTONIX [Suspect]
     Indication: GASTROINTESTINAL HAEMORRHAGE
     Dosage: 80MG DAILY INTRAVENOUS
     Route: 042
     Dates: start: 20050322, end: 20050324
  2. PROTONIX [Suspect]
     Dosage: 40MG BID ORAL
     Route: 048
     Dates: start: 20050324, end: 20050329
  3. FUROSEMIDE [Concomitant]
  4. KCL IV [Concomitant]
  5. CARAFATE [Concomitant]
  6. MAGNESIUM SULFATE [Concomitant]
  7. LOPRESSOR [Concomitant]
  8. ATIVAN [Concomitant]

REACTIONS (1)
  - PLATELET COUNT DECREASED [None]
